FAERS Safety Report 21291408 (Version 1)
Quarter: 2022Q3

REPORT INFORMATION
  Report Type: Spontaneous
  Country: US (occurrence: US)
  Receive Date: 20220903
  Receipt Date: 20220903
  Transmission Date: 20221026
  Serious: No
  Sender: FDA-Public Use
  Company Number: US-TEVA-2022-US-2068693

PATIENT
  Age: 51 Year
  Sex: Female

DRUGS (4)
  1. PROVIGIL [Suspect]
     Active Substance: MODAFINIL
     Indication: Asthenia
     Route: 065
     Dates: start: 2018
  2. PROVIGIL [Suspect]
     Active Substance: MODAFINIL
     Indication: Fatigue
  3. OCREVUS [Concomitant]
     Active Substance: OCRELIZUMAB
     Indication: Product used for unknown indication
  4. VITAMIN D [Concomitant]
     Active Substance: VITAMIN D NOS
     Indication: Product used for unknown indication

REACTIONS (3)
  - COVID-19 [Not Recovered/Not Resolved]
  - Drug effect less than expected [Not Recovered/Not Resolved]
  - Drug ineffective for unapproved indication [Unknown]

NARRATIVE: CASE EVENT DATE: 20220101
